FAERS Safety Report 4774895-6 (Version None)
Quarter: 2005Q3

REPORT INFORMATION
  Report Type: 
  Country: None (occurrence: None)
  Receive Date: 20050921
  Receipt Date: 20050802
  Transmission Date: 20060218
  Serious: Yes (Death, Hospitalization)
  Sender: FDA-Public Use
  Company Number: 200516065US

PATIENT
  Sex: Female

DRUGS (17)
  1. LANTUS [Suspect]
     Indication: DIABETES MELLITUS INSULIN-DEPENDENT
     Dosage: DOSE UNIT: UNITS
     Route: 058
     Dates: start: 20041004, end: 20050801
  2. ASPIRIN [Concomitant]
     Dosage: DOSE: UNK
  3. CAPTOPRIL [Concomitant]
     Dosage: DOSE: UNK
  4. COREG [Concomitant]
     Dosage: DOSE: UNK
  5. DIGITEK [Concomitant]
     Dosage: DOSE: UNK
  6. STARLIX [Concomitant]
     Dosage: DOSE: UNK
  7. SPIROLACTONE [Concomitant]
     Dosage: DOSE: UNK
  8. NORVASC [Concomitant]
     Dosage: DOSE: UNK
  9. NYSTATIN TAB [Concomitant]
     Dosage: DOSE: UNK
  10. MINOCYCLINE [Concomitant]
     Dosage: DOSE: UNK
  11. METFORMIN HCL [Concomitant]
     Dosage: DOSE: UNK
  12. FUROSEMIDE [Concomitant]
     Dosage: DOSE: UNK
  13. COUMADIN [Concomitant]
     Dosage: DOSE: UNK
  14. GLIPIZIDE [Concomitant]
     Dosage: DOSE: UNK
  15. DIOVAN [Concomitant]
     Dosage: DOSE: UNK
  16. BISACODYL [Concomitant]
     Dosage: DOSE: UNK
  17. NYSTATIN [Concomitant]
     Dosage: DOSE: UNK

REACTIONS (3)
  - BLOOD GLUCOSE FLUCTUATION [None]
  - DEATH [None]
  - HOSPITALISATION [None]
